FAERS Safety Report 9402700 (Version 3)
Quarter: 2013Q3

REPORT INFORMATION
  Report Type: Spontaneous
  Country: US (occurrence: US)
  Receive Date: 20130716
  Receipt Date: 20130919
  Transmission Date: 20140515
  Serious: Yes (Life-Threatening, Other)
  Sender: FDA-Public Use
  Company Number: US-ASTELLAS-2013US007422

PATIENT
  Age: 88 Year
  Sex: Female

DRUGS (2)
  1. LEXISCAN [Suspect]
     Indication: SCAN MYOCARDIAL PERFUSION
     Dosage: UNK
     Route: 042
     Dates: start: 20121029, end: 20121029
  2. LEXISCAN [Suspect]
     Dosage: UNK
     Route: 042
     Dates: start: 20130501, end: 20130501

REACTIONS (9)
  - Mydriasis [Recovered/Resolved]
  - Mydriasis [Unknown]
  - Pulse abnormal [Recovered/Resolved]
  - Pulse abnormal [Unknown]
  - Depressed level of consciousness [Recovered/Resolved]
  - Depressed level of consciousness [Unknown]
  - Hypotension [Recovered/Resolved]
  - Hypotension [Unknown]
  - Drug hypersensitivity [Unknown]
